FAERS Safety Report 25100093 (Version 3)
Quarter: 2025Q2

REPORT INFORMATION
  Report Type: Report from Study
  Country: CA (occurrence: CA)
  Receive Date: 20250320
  Receipt Date: 20250516
  Transmission Date: 20250716
  Serious: Yes (Other)
  Sender: TAKEDA
  Company Number: CA-TAKEDA-2025TUS012268

PATIENT
  Age: 42 Year
  Sex: Female

DRUGS (6)
  1. VEDOLIZUMAB [Suspect]
     Active Substance: VEDOLIZUMAB
     Indication: Colitis ulcerative
  2. VEDOLIZUMAB [Suspect]
     Active Substance: VEDOLIZUMAB
     Indication: Colitis ulcerative
     Dosage: 108 MILLIGRAM, Q2WEEKS
     Dates: start: 20230321
  3. VEDOLIZUMAB [Suspect]
     Active Substance: VEDOLIZUMAB
     Dosage: 108 MILLIGRAM, 1/WEEK
     Dates: start: 20230712
  4. PREDNISONE [Concomitant]
     Active Substance: PREDNISONE
  5. ROSUVASTATIN [Concomitant]
     Active Substance: ROSUVASTATIN
  6. OZEMPIC [Concomitant]
     Active Substance: SEMAGLUTIDE

REACTIONS (5)
  - Colitis ulcerative [Unknown]
  - Diabetes mellitus [Unknown]
  - Weight increased [Unknown]
  - Infection susceptibility increased [Unknown]
  - Off label use [Unknown]

NARRATIVE: CASE EVENT DATE: 20230712
